FAERS Safety Report 10722138 (Version 1)
Quarter: 2015Q1

REPORT INFORMATION
  Report Type: Spontaneous
  Country: FR (occurrence: FR)
  Receive Date: 20150119
  Receipt Date: 20150119
  Transmission Date: 20150721
  Serious: Yes (Hospitalization)
  Sender: FDA-Public Use
  Company Number: FR-009507513-1501FRA005711

PATIENT
  Age: 86 Year
  Sex: Female

DRUGS (2)
  1. NOROXINE [Suspect]
     Active Substance: NORFLOXACIN
     Indication: KLEBSIELLA INFECTION
     Dosage: UNK
     Route: 048
     Dates: start: 20130131, end: 20130204
  2. COUMADIN [Suspect]
     Active Substance: WARFARIN SODIUM
     Dosage: 1.5 DF, QD
     Route: 048
     Dates: end: 20130204

REACTIONS (2)
  - Haematuria [Recovered/Resolved]
  - Acute kidney injury [Recovered/Resolved]

NARRATIVE: CASE EVENT DATE: 20130204
